FAERS Safety Report 12864718 (Version 1)
Quarter: 2016Q4

REPORT INFORMATION
  Report Type: Spontaneous
  Country: US (occurrence: US)
  Receive Date: 20161019
  Receipt Date: 20161019
  Transmission Date: 20170207
  Serious: No
  Sender: FDA-Public Use
  Company Number: None

PATIENT
  Age: 29 Year
  Sex: Female
  Weight: 67.5 kg

DRUGS (1)
  1. ENSKYCE [Suspect]
     Active Substance: DESOGESTREL\ETHINYL ESTRADIOL
     Indication: MENORRHAGIA
     Dosage: ?          QUANTITY:28 TABLET(S);?
     Route: 048

REACTIONS (5)
  - Hypophagia [None]
  - Pharyngeal ulceration [None]
  - Mouth ulceration [None]
  - Dysphagia [None]
  - Mouth swelling [None]

NARRATIVE: CASE EVENT DATE: 20160904
